FAERS Safety Report 9239013 (Version 3)
Quarter: 2013Q4

REPORT INFORMATION
  Report Type: Spontaneous
  Country: JP (occurrence: JP)
  Receive Date: 20130418
  Receipt Date: 20131226
  Transmission Date: 20140711
  Serious: Yes (Disabling, Other)
  Sender: FDA-Public Use
  Company Number: JP-AMGEN-JPNSP2013026417

PATIENT
  Age: 73 Year
  Sex: Male

DRUGS (13)
  1. RANMARK [Suspect]
     Indication: METASTASES TO BONE
     Dosage: 120 MG, UNK
     Route: 065
     Dates: start: 20120612, end: 20121016
  2. REZALTAS [Concomitant]
     Indication: HYPERTENSION
     Dosage: UNKNOWN
     Route: 048
     Dates: start: 20110809
  3. AMLODIN [Concomitant]
     Indication: HYPERTENSION
     Dosage: UNKNOWN
     Route: 048
     Dates: start: 20120110
  4. AMLODIN [Concomitant]
     Dosage: UNKNOWN
     Route: 048
     Dates: start: 20120110
  5. CHLOR-TRIMETON [Concomitant]
     Indication: RENAL CANCER
     Route: 042
     Dates: start: 20111220, end: 20130108
  6. TAKEPRON [Concomitant]
     Indication: GASTRIC ULCER
     Dosage: UNKNOWN
     Route: 048
     Dates: start: 20110412
  7. TAKEPRON [Concomitant]
     Dosage: UNKNOWN
     Route: 048
     Dates: start: 20110412
  8. LOXONIN [Concomitant]
     Indication: PAIN
     Route: 048
     Dates: start: 20110412
  9. PRORENAL [Concomitant]
     Indication: LUMBAR SPINAL STENOSIS
     Route: 048
     Dates: start: 20110328
  10. ALLEGRA [Concomitant]
     Indication: RHINITIS ALLERGIC
     Route: 048
     Dates: start: 20111129
  11. LASIX                              /00032601/ [Concomitant]
     Indication: HYPERTENSION
     Route: 048
     Dates: start: 20120508, end: 20121126
  12. TORISEL [Concomitant]
     Dosage: UNKNOWN
     Route: 065
     Dates: start: 20111220, end: 20130108
  13. INLYTA [Concomitant]
     Route: 065
     Dates: start: 20130115

REACTIONS (1)
  - Osteonecrosis of jaw [Not Recovered/Not Resolved]
